FAERS Safety Report 5578918-6 (Version None)
Quarter: 2008Q1

REPORT INFORMATION
  Report Type: 
  Country: None (occurrence: None)
  Receive Date: 20080102
  Receipt Date: 20071220
  Transmission Date: 20080703
  Serious: Yes (Other)
  Sender: FDA-Public Use
  Company Number: GB-PURDUE-GBR_2007_0003560

PATIENT
  Age: 50 Year
  Sex: Male
  Weight: 77 kg

DRUGS (1)
  1. OXYNORM CAPSULES 10 MG [Suspect]
     Indication: PROCEDURAL PAIN
     Dosage: 10 MG, UNK
     Route: 048
     Dates: start: 20071212

REACTIONS (2)
  - ATRIAL FIBRILLATION [None]
  - BLOOD PRESSURE ABNORMAL [None]
